FAERS Safety Report 15795613 (Version 1)
Quarter: 2019Q1

REPORT INFORMATION
  Report Type: Spontaneous
  Country: MX (occurrence: MX)
  Receive Date: 20190107
  Receipt Date: 20190107
  Transmission Date: 20190417
  Serious: Yes (Other)
  Sender: FDA-Public Use
  Company Number: MX-BAUSCH-BL-2019-000081

PATIENT
  Age: 55 Year
  Sex: Female

DRUGS (7)
  1. KOJIC ACID [Suspect]
     Active Substance: KOJIC ACID
     Indication: OCHRONOSIS
     Route: 061
  2. PHYTIC ACID [Suspect]
     Active Substance: FYTIC ACID
     Indication: OCHRONOSIS
     Route: 061
  3. CITRIC ACID [Suspect]
     Active Substance: CITRIC ACID MONOHYDRATE
     Indication: OCHRONOSIS
     Route: 061
  4. PIMECROLIMUS. [Suspect]
     Active Substance: PIMECROLIMUS
     Indication: OCHRONOSIS
     Route: 061
  5. FERULIC ACID [Suspect]
     Active Substance: FERULIC ACID
     Indication: OCHRONOSIS
     Route: 061
  6. HYDROQUINONE. [Suspect]
     Active Substance: HYDROQUINONE
     Indication: SKIN HYPERPIGMENTATION
     Route: 061
  7. HYDROQUINONE. [Suspect]
     Active Substance: HYDROQUINONE
     Indication: OCHRONOSIS
     Route: 061

REACTIONS (2)
  - Ochronosis [Recovering/Resolving]
  - Drug ineffective [Unknown]
